FAERS Safety Report 8312712 (Version 3)
Quarter: 2014Q3

REPORT INFORMATION
  Report Type: Report from Study
  Country: US (occurrence: US)
  Receive Date: 20111227
  Receipt Date: 20140827
  Transmission Date: 20150326
  Serious: Yes (Death, Hospitalization)
  Sender: FDA-Public Use
  Company Number: US-ACTELION-A-US2011-50816

PATIENT
  Age: 61 Year
  Sex: Female
  Weight: 49.89 kg

DRUGS (17)
  1. DIGOXIN. [Concomitant]
     Active Substance: DIGOXIN
  2. LOPERAMIDE [Concomitant]
     Active Substance: LOPERAMIDE
  3. OXYGEN. [Concomitant]
     Active Substance: OXYGEN
  4. PRILOSEC [Concomitant]
     Active Substance: OMEPRAZOLE MAGNESIUM
  5. SPIRONOLACTONE. [Concomitant]
     Active Substance: SPIRONOLACTONE
  6. SILDENAFIL [Concomitant]
     Active Substance: SILDENAFIL
  7. MONTELUKAST [Concomitant]
     Active Substance: MONTELUKAST SODIUM
  8. KCL [Concomitant]
     Active Substance: POTASSIUM CHLORIDE
  9. VELETRI [Suspect]
     Active Substance: EPOPROSTENOL
     Indication: PULMONARY ARTERIAL HYPERTENSION
     Dosage: 4 NG/KG, PER MIN
     Route: 042
     Dates: start: 20100602, end: 20140713
  10. CALCIUM CARBONATE. [Concomitant]
     Active Substance: CALCIUM CARBONATE
  11. TRACLEER [Suspect]
     Active Substance: BOSENTAN\BOSENTAN MONOHYDRATE
     Indication: PULMONARY ARTERIAL HYPERTENSION
     Dosage: 125 MG, BID
     Route: 048
     Dates: start: 20080731, end: 20111214
  12. LETAIRIS [Concomitant]
     Active Substance: AMBRISENTAN
  13. FOLIC ACID. [Concomitant]
     Active Substance: FOLIC ACID
  14. ZOFRAN [Concomitant]
     Active Substance: ONDANSETRON HYDROCHLORIDE
  15. BUMEX [Concomitant]
     Active Substance: BUMETANIDE
  16. VITAMIN B 12 LICHTENSTEIN [Concomitant]
  17. TYLENOL [Concomitant]
     Active Substance: ACETAMINOPHEN

REACTIONS (8)
  - Urine leukocyte esterase positive [Unknown]
  - Anaemia [Recovered/Resolved]
  - Occult blood positive [Not Recovered/Not Resolved]
  - Haematochezia [Not Recovered/Not Resolved]
  - Diarrhoea [Unknown]
  - Transfusion [Recovered/Resolved]
  - Gastrointestinal haemorrhage [Not Recovered/Not Resolved]
  - Death [Fatal]

NARRATIVE: CASE EVENT DATE: 20110304
